FAERS Safety Report 7403812-5 (Version None)
Quarter: 2011Q1

REPORT INFORMATION
  Report Type: 
  Country: None (occurrence: None)
  Receive Date: 20110331
  Receipt Date: 20110316
  Transmission Date: 20110831
  Serious: Yes (Other)
  Sender: FDA-Public Use
  Company Number: DQ-50-0728

PATIENT
  Age: 22 Month
  Weight: 13 kg

DRUGS (1)
  1. ALBUTEROL SULFATE [Suspect]
     Dosage: INHALATION VIA NEBULIZ
     Dates: start: 20110301

REACTIONS (3)
  - ATRIOVENTRICULAR BLOCK SECOND DEGREE [None]
  - BRADYCARDIA [None]
  - CARDIAC MURMUR [None]
